FAERS Safety Report 26117290 (Version 1)
Quarter: 2025Q4

REPORT INFORMATION
  Report Type: Spontaneous
  Country: CA (occurrence: CA)
  Receive Date: 20251203
  Receipt Date: 20251203
  Transmission Date: 20260118
  Serious: Yes (Hospitalization)
  Sender: AMGEN
  Company Number: CA-AMGEN-CANSP2025237479

PATIENT
  Sex: Female

DRUGS (1)
  1. WEZLANA [Suspect]
     Active Substance: USTEKINUMAB-AUUB
     Indication: Crohn^s disease
     Dosage: 90 MILLIGRAM, Q8WK
     Route: 065
     Dates: start: 20250903

REACTIONS (1)
  - Intestinal obstruction [Unknown]
